FAERS Safety Report 13426934 (Version 6)
Quarter: 2025Q2

REPORT INFORMATION
  Report Type: Report from Study
  Country: JP (occurrence: JP)
  Receive Date: 20170411
  Receipt Date: 20250424
  Transmission Date: 20250716
  Serious: Yes (Death, Hospitalization, Other)
  Sender: CHIESI
  Company Number: JP-AEGERION PHARMACEUTICALS-AEGR-2017-00073

PATIENT
  Age: 69 Year
  Sex: Male
  Weight: 62 kg

DRUGS (13)
  1. LOMITAPIDE [Suspect]
     Active Substance: LOMITAPIDE
     Indication: Type IIa hyperlipidaemia
     Route: 048
     Dates: start: 20170209
  2. LOMITAPIDE [Suspect]
     Active Substance: LOMITAPIDE
     Route: 048
     Dates: start: 20170427
  3. LOMITAPIDE [Suspect]
     Active Substance: LOMITAPIDE
     Route: 048
     Dates: start: 20170511
  4. LOMITAPIDE [Suspect]
     Active Substance: LOMITAPIDE
     Route: 048
     Dates: start: 20170608, end: 20200213
  5. LOMITAPIDE [Suspect]
     Active Substance: LOMITAPIDE
     Route: 048
  6. COLESTILAN CHLORIDE [Suspect]
     Active Substance: COLESTILAN CHLORIDE
     Indication: Type IIa hyperlipidaemia
     Dosage: 1.81 G TWICE A DAY
     Route: 048
     Dates: start: 20131017, end: 20170329
  7. CRESTOR [Concomitant]
     Active Substance: ROSUVASTATIN CALCIUM
     Indication: Hypercholesterolaemia
     Dosage: 20 MG, QD
     Route: 048
     Dates: start: 20081017
  8. ASPIRIN [Concomitant]
     Active Substance: ASPIRIN
     Indication: Angina pectoris
     Dosage: 100 MG, QD
     Route: 048
  9. TICLOPIDINE HYDROCHLORIDE [Concomitant]
     Active Substance: TICLOPIDINE HYDROCHLORIDE
     Indication: Angina pectoris
     Dosage: 100 MG, QD
     Route: 048
  10. RABEPRAZOLE SODIUM [Concomitant]
     Active Substance: RABEPRAZOLE SODIUM
     Indication: Gastric ulcer
     Dosage: 10 MG, QD
     Route: 048
     Dates: start: 20170405
  11. RABEPRAZOLE SODIUM [Concomitant]
     Active Substance: RABEPRAZOLE SODIUM
  12. ZETIA [Concomitant]
     Active Substance: EZETIMIBE
     Indication: Hypercholesterolaemia
     Dosage: 10 MG, QD
     Route: 048
     Dates: start: 20081017
  13. AMLODIPINE [Concomitant]
     Active Substance: AMLODIPINE BESYLATE
     Indication: Hypertension
     Dosage: 5 UNK, QD
     Route: 048
     Dates: start: 20190808

REACTIONS (9)
  - Aortic aneurysm rupture [Fatal]
  - Postoperative ileus [Recovering/Resolving]
  - Lymphoma [Recovering/Resolving]
  - Calculus urinary [Recovered/Resolved]
  - Hepatic function abnormal [Recovered/Resolved]
  - Hepatic function abnormal [Recovering/Resolving]
  - Hepatic function abnormal [Recovering/Resolving]
  - Diarrhoea [Recovering/Resolving]
  - Diarrhoea [Recovering/Resolving]

NARRATIVE: CASE EVENT DATE: 20170328
